FAERS Safety Report 6015132-4 (Version None)
Quarter: 2008Q4

REPORT INFORMATION
  Report Type: 
  Country: None (occurrence: None)
  Receive Date: 20081218
  Receipt Date: 20081202
  Transmission Date: 20090506
  Serious: Yes (Hospitalization)
  Sender: FDA-Public Use
  Company Number: KV200800860

PATIENT
  Age: 70 Year
  Sex: Female
  Weight: 90.7 kg

DRUGS (2)
  1. ISOSORBIDE MONONITRATE [Suspect]
     Indication: MYOCARDIAL INFARCTION
     Dosage: 60 MG, QD, ORAL
     Route: 048
     Dates: start: 20040101
  2. ANTIHYPERTENSIVES [Concomitant]

REACTIONS (5)
  - DIZZINESS [None]
  - FALL [None]
  - LOSS OF CONSCIOUSNESS [None]
  - PRODUCT QUALITY ISSUE [None]
  - UPPER LIMB FRACTURE [None]
